FAERS Safety Report 9639229 (Version 4)
Quarter: 2014Q2

REPORT INFORMATION
  Report Type: Spontaneous
  Country: US (occurrence: US)
  Receive Date: 20131022
  Receipt Date: 20140404
  Transmission Date: 20141212
  Serious: Yes (Death)
  Sender: FDA-Public Use
  Company Number: US-ROCHE-1290289

PATIENT
  Sex: Female

DRUGS (1)
  1. AVASTIN [Suspect]
     Indication: NEOPLASM MALIGNANT
     Route: 065

REACTIONS (5)
  - Neoplasm malignant [Fatal]
  - Product counterfeit [Unknown]
  - Product quality issue [Unknown]
  - Drug effect decreased [Unknown]
  - Drug ineffective [Unknown]
